FAERS Safety Report 8709903 (Version 2)
Quarter: 2012Q4

REPORT INFORMATION
  Report Type: 
  Country: US (occurrence: US)
  Receive Date: 20120806
  Receipt Date: 20121011
  Transmission Date: 20130627
  Serious: No
  Sender: FDA-Public Use
  Company Number: US-PFIZER INC-2012147537

PATIENT
  Age: 74 Year
  Sex: Female

DRUGS (8)
  1. TOVIAZ [Suspect]
     Indication: POLLAKIURIA
     Dosage: 4 mg, 1x/day, 1
     Route: 048
  2. TOVIAZ [Suspect]
     Indication: BLADDER SPASM
  3. DETROL LA [Suspect]
     Indication: INCONTINENCE
     Dosage: UNK
     Dates: start: 201204, end: 201204
  4. ATENOLOL [Concomitant]
     Dosage: UNK
  5. LOVASTATIN [Concomitant]
     Dosage: UNK
  6. SPIRONOLACTONE [Concomitant]
     Dosage: UNK
  7. HUMALOG [Concomitant]
     Dosage: UNK
  8. NIACIN [Concomitant]
     Dosage: UNK

REACTIONS (3)
  - Abdominal pain upper [Unknown]
  - Diarrhoea [Unknown]
  - Pain [Unknown]
